FAERS Safety Report 14685234 (Version 2)
Quarter: 2018Q2

REPORT INFORMATION
  Report Type: Report from Study
  Country: US (occurrence: US)
  Receive Date: 20180327
  Receipt Date: 20180411
  Transmission Date: 20180711
  Serious: Yes (Other)
  Sender: FDA-Public Use
  Company Number: US-GILEAD-2018-0325344

PATIENT
  Age: 75 Year
  Sex: Female

DRUGS (8)
  1. IDELALISIB [Suspect]
     Active Substance: IDELALISIB
     Indication: CHRONIC LYMPHOCYTIC LEUKAEMIA
     Dosage: 150 MG, BID
     Route: 065
     Dates: start: 20171116
  2. ATORVASTATIN CALCIUM. [Concomitant]
     Active Substance: ATORVASTATIN CALCIUM
  3. MULTI VITAMINS + MINERALS [Concomitant]
  4. SYNTHROID [Concomitant]
     Active Substance: LEVOTHYROXINE SODIUM
  5. PHENYTOIN. [Concomitant]
     Active Substance: PHENYTOIN
  6. CITALOPRAM [Concomitant]
     Active Substance: CITALOPRAM HYDROBROMIDE
  7. ELIQUIS [Concomitant]
     Active Substance: APIXABAN
  8. RITUXAN [Concomitant]
     Active Substance: RITUXIMAB
     Indication: LYMPHOCYTIC LEUKAEMIA

REACTIONS (8)
  - Vision blurred [Unknown]
  - Malaise [Not Recovered/Not Resolved]
  - Unevaluable event [Not Recovered/Not Resolved]
  - Dyspnoea exertional [Not Recovered/Not Resolved]
  - Balance disorder [Unknown]
  - Drug ineffective [Unknown]
  - Transfusion [Not Recovered/Not Resolved]
  - Asthenia [Not Recovered/Not Resolved]
